FAERS Safety Report 5005819-4 (Version None)
Quarter: 2006Q2

REPORT INFORMATION
  Report Type: 
  Country: None (occurrence: None)
  Receive Date: 20060515
  Receipt Date: 20060504
  Transmission Date: 20061013
  Serious: Yes (Other)
  Sender: FDA-Public Use
  Company Number: 224765

PATIENT
  Age: 58 Year
  Sex: Female

DRUGS (1)
  1. NUTROPIN [Suspect]
     Indication: GROWTH HORMONE DEFICIENCY

REACTIONS (9)
  - DEAFNESS UNILATERAL [None]
  - DIFFICULTY IN WALKING [None]
  - DIZZINESS [None]
  - FALL [None]
  - GAIT DISTURBANCE [None]
  - INTRACRANIAL ANEURYSM [None]
  - LUNG NEOPLASM [None]
  - PETIT MAL EPILEPSY [None]
  - WEIGHT DECREASED [None]
